FAERS Safety Report 5380306-2 (Version None)
Quarter: 2007Q3

REPORT INFORMATION
  Report Type: 
  Country: None (occurrence: None)
  Receive Date: 20070706
  Receipt Date: 20070516
  Transmission Date: 20080115
  Serious: No
  Sender: FDA-Public Use
  Company Number: A0651574A

PATIENT
  Age: 82 Year
  Sex: Female

DRUGS (12)
  1. TYKERB [Suspect]
     Indication: BREAST CANCER
     Dosage: 5TAB PER DAY
     Route: 048
     Dates: start: 20070417
  2. MULTIVITAMIN [Concomitant]
  3. GABAPENTIN [Concomitant]
  4. CELEXA [Concomitant]
  5. LIPITOR [Concomitant]
  6. TRAZODONE HCL [Concomitant]
  7. LOZOL [Concomitant]
  8. OMEGA 3 [Concomitant]
  9. CALCIUM GLUCONATE [Concomitant]
  10. FERRO SULFATE [Concomitant]
  11. XELODA [Concomitant]
  12. STOMATITIS COCKTAIL [Concomitant]

REACTIONS (1)
  - PHARYNGOLARYNGEAL PAIN [None]
